FAERS Safety Report 7941848-6 (Version None)
Quarter: 2011Q4

REPORT INFORMATION
  Report Type: 
  Country: None (occurrence: None)
  Receive Date: 20111128
  Receipt Date: 20111114
  Transmission Date: 20120403
  Serious: Yes (Other)
  Sender: FDA-Public Use
  Company Number: US-ENDO PHARMACEUTICALS INC.-CARI20110012

PATIENT
  Sex: Female
  Weight: 64.922 kg

DRUGS (7)
  1. MAXALT [Suspect]
     Indication: MIGRAINE
     Dosage: 10 MG
     Route: 065
  2. MEDROL [Concomitant]
     Indication: PAIN
     Dosage: 5 MG
     Route: 065
  3. CARISOPRODOL [Suspect]
     Indication: MUSCLE SPASMS
     Dosage: 350 MG PRN
     Route: 048
     Dates: start: 20030101
  4. IMITREX [Suspect]
     Indication: MIGRAINE
     Dosage: 4 MG
  5. MEDROL [Concomitant]
     Indication: INFLAMMATION
  6. EPIPEN [Concomitant]
     Indication: HYPERSENSITIVITY
     Dosage: UNK
  7. TOPAMAX [Concomitant]
     Indication: MIGRAINE
     Dosage: UNK
     Route: 065

REACTIONS (2)
  - URTICARIA [None]
  - SWELLING FACE [None]
